FAERS Safety Report 8947369 (Version 2)
Quarter: 2019Q3

REPORT INFORMATION
  Report Type: Spontaneous
  Country: FR (occurrence: FR)
  Receive Date: 20121205
  Receipt Date: 20190912
  Transmission Date: 20191005
  Serious: Yes (Death, Hospitalization)
  Sender: FDA-Public Use
  Company Number: FR-PFIZER INC-2012146969

PATIENT
  Age: 42 Year
  Sex: Female
  Weight: 46 kg

DRUGS (9)
  1. FLUOROURACILE PFIZER [Suspect]
     Active Substance: FLUOROURACIL
     Dosage: 400 MG/M2, 1X/DAY, DAY-1, 4TH CYCLE
     Route: 040
     Dates: start: 20120503
  2. FLUOROURACILE PFIZER [Suspect]
     Active Substance: FLUOROURACIL
     Dosage: 2400 MG/M2, CYCLIC, FROM D-1 TO D-2, 4TH CYCLE
     Route: 041
     Dates: start: 20120503, end: 20120504
  3. OXALIPLATIN. [Suspect]
     Active Substance: OXALIPLATIN
     Dosage: 85 MG/M2, CYCLIC, D-1, 4TH CYCLE
     Route: 042
     Dates: start: 20120503, end: 20120504
  4. ERBITUX [Suspect]
     Active Substance: CETUXIMAB
     Dosage: 500 MG/M2, CYCLIC, D1, 4TH CYCLE
     Route: 042
     Dates: start: 20120503, end: 20120504
  5. CALCIUM LEVOFOLINATE [Suspect]
     Active Substance: LEVOLEUCOVORIN CALCIUM
     Dosage: 200 MG/M2, CYCLIC, D1, 4TH CYCLE
     Route: 042
     Dates: start: 20120503, end: 20120504
  6. OXALIPLATIN. [Suspect]
     Active Substance: OXALIPLATIN
     Indication: COLORECTAL CANCER
     Dosage: 200 MG/40 ML, CYCLIC
     Route: 042
     Dates: start: 20120322
  7. ERBITUX [Suspect]
     Active Substance: CETUXIMAB
     Indication: COLORECTAL CANCER
     Dosage: 500 MG/100 ML, CYCLIC
     Route: 042
     Dates: start: 20120322
  8. CALCIUM LEVOFOLINATE [Suspect]
     Active Substance: LEVOLEUCOVORIN CALCIUM
     Indication: COLORECTAL CANCER
     Dosage: 175 MG/17.5 ML, CYCLIC
     Route: 042
     Dates: start: 20120322
  9. FLUOROURACILE PFIZER [Suspect]
     Active Substance: FLUOROURACIL
     Indication: COLORECTAL CANCER
     Dosage: 5000 MG/100 ML, CYCLIC
     Route: 042
     Dates: start: 20120322

REACTIONS (2)
  - Haematuria [Recovered/Resolved]
  - Neoplasm progression [Fatal]

NARRATIVE: CASE EVENT DATE: 20120513
